FAERS Safety Report 10019032 (Version 1)
Quarter: 2014Q1

REPORT INFORMATION
  Report Type: Spontaneous
  Country: US (occurrence: None)
  Receive Date: 20140314
  Receipt Date: 20140314
  Transmission Date: 20141002
  Serious: Yes (Hospitalization)
  Sender: FDA-Public Use
  Company Number: None

PATIENT
  Age: 60 Year
  Sex: Female
  Weight: 81.9 kg

DRUGS (9)
  1. PEMETREXED [Suspect]
  2. ALBUTEROL [Concomitant]
  3. ATORVASTATIN [Concomitant]
  4. DEXAMETHASONE [Concomitant]
  5. ELAVIL [Concomitant]
  6. ENALAPRIL [Concomitant]
  7. GLIPIZIDE [Concomitant]
  8. METFORMIN [Concomitant]
  9. HYDROCHLOROTHIAZIDE [Concomitant]

REACTIONS (4)
  - Chest discomfort [None]
  - Cardiac flutter [None]
  - Chest pain [None]
  - Heart rate increased [None]
